FAERS Safety Report 12275710 (Version 2)
Quarter: 2016Q2

REPORT INFORMATION
  Report Type: Spontaneous
  Country: CA (occurrence: CA)
  Receive Date: 20160418
  Receipt Date: 20160425
  Transmission Date: 20160815
  Serious: Yes (Other)
  Sender: FDA-Public Use
  Company Number: CA-ROCHE-1741464

PATIENT
  Age: 68 Year
  Sex: Female

DRUGS (8)
  1. XOLAIR [Suspect]
     Active Substance: OMALIZUMAB
     Indication: ASTHMA
     Route: 058
     Dates: start: 20150612
  2. SYNTHROID [Concomitant]
     Active Substance: LEVOTHYROXINE SODIUM
  3. XOLAIR [Suspect]
     Active Substance: OMALIZUMAB
     Route: 058
     Dates: start: 20160304
  4. SPIRIVA [Concomitant]
     Active Substance: TIOTROPIUM BROMIDE MONOHYDRATE
  5. TECTA [Concomitant]
     Active Substance: PANTOPRAZOLE MAGNESIUM
  6. PULMICORT TURBUHALER [Concomitant]
     Active Substance: BUDESONIDE
  7. PLAVIX [Concomitant]
     Active Substance: CLOPIDOGREL BISULFATE
  8. DILTIAZEM [Concomitant]
     Active Substance: DILTIAZEM

REACTIONS (11)
  - Asthma [Unknown]
  - Pneumonia [Unknown]
  - Supraventricular tachycardia [Unknown]
  - Pulmonary function test decreased [Unknown]
  - Cough [Unknown]
  - Wheezing [Unknown]
  - Herpes zoster [Unknown]
  - Bronchitis [Recovering/Resolving]
  - Dyspnoea [Unknown]
  - Infection susceptibility increased [Unknown]
  - Malaise [Unknown]

NARRATIVE: CASE EVENT DATE: 20151208
